FAERS Safety Report 12648010 (Version 1)
Quarter: 2016Q3

REPORT INFORMATION
  Report Type: Spontaneous
  Country: US (occurrence: None)
  Receive Date: 20160811
  Receipt Date: 20160811
  Transmission Date: 20161109
  Serious: Yes (Hospitalization)
  Sender: FDA-Public Use
  Company Number: None

PATIENT
  Age: 88 Year
  Sex: Male
  Weight: 59.9 kg

DRUGS (10)
  1. DOCUSATE SODIUM (COLLACE) [Concomitant]
  2. NORVASC [Concomitant]
     Active Substance: AMLODIPINE BESYLATE
  3. LISINOPRIL (PRINIVIL, ZESTRIL) [Concomitant]
  4. DYAZIDE [Concomitant]
     Active Substance: HYDROCHLOROTHIAZIDE\TRIAMTERENE
  5. ASPIRIN. [Concomitant]
     Active Substance: ASPIRIN
  6. METOPROLOL (LOPRESSOR) [Concomitant]
  7. PROSCAR [Concomitant]
     Active Substance: FINASTERIDE
  8. LIPITOR [Concomitant]
     Active Substance: ATORVASTATIN CALCIUM
  9. ENZALUTAMIDE 150MG CATALENT PHARMA SOLUTIONS FOR ASTELLA [Suspect]
     Active Substance: ENZALUTAMIDE
     Indication: PROSTATE CANCER
     Route: 048
     Dates: start: 20160629
  10. FLOMAX [Concomitant]
     Active Substance: TAMSULOSIN HYDROCHLORIDE

REACTIONS (2)
  - Dizziness [None]
  - Asthenia [None]

NARRATIVE: CASE EVENT DATE: 20160808
